FAERS Safety Report 17277267 (Version 1)
Quarter: 2020Q1

REPORT INFORMATION
  Report Type: Spontaneous
  Country: US (occurrence: US)
  Receive Date: 20200116
  Receipt Date: 20200116
  Transmission Date: 20200409
  Serious: Yes (Other)
  Sender: FDA-Public Use
  Company Number: US-VIFOR (INTERNATIONAL) INC.-VIT-2020-00459

PATIENT
  Sex: Male

DRUGS (19)
  1. FLOMAX [Concomitant]
     Active Substance: TAMSULOSIN HYDROCHLORIDE
  2. PRILOSEC [Concomitant]
     Active Substance: OMEPRAZOLE MAGNESIUM
  3. RENAL [Concomitant]
  4. VITAMIN D3 [Concomitant]
     Active Substance: CHOLECALCIFEROL
  5. VELTASSA [Suspect]
     Active Substance: PATIROMER
     Indication: HYPERKALAEMIA
     Route: 048
     Dates: start: 20160804
  6. METOPROLOL TAR [Concomitant]
     Active Substance: METOPROLOL TARTRATE
  7. NOVOLOG [Concomitant]
     Active Substance: INSULIN ASPART
  8. CRANBERRY. [Concomitant]
     Active Substance: CRANBERRY
  9. LANTUS [Concomitant]
     Active Substance: INSULIN GLARGINE
  10. AMLODIPINE [Concomitant]
     Active Substance: AMLODIPINE BESYLATE
  11. NORCO [Concomitant]
     Active Substance: ACETAMINOPHEN\HYDROCODONE BITARTRATE
  12. ZETIA [Concomitant]
     Active Substance: EZETIMIBE
  13. COENZYME Q10 [Concomitant]
     Active Substance: UBIDECARENONE
  14. VICTOZA [Concomitant]
     Active Substance: LIRAGLUTIDE
  15. LOSARTAN. [Concomitant]
     Active Substance: LOSARTAN
  16. MIRAPEX [Concomitant]
     Active Substance: PRAMIPEXOLE DIHYDROCHLORIDE
  17. ALPRAZOLAM. [Concomitant]
     Active Substance: ALPRAZOLAM
  18. DULOXETINE. [Concomitant]
     Active Substance: DULOXETINE
  19. LOVAZA [Concomitant]
     Active Substance: OMEGA-3-ACID ETHYL ESTERS

REACTIONS (1)
  - End stage renal disease [Unknown]
